FAERS Safety Report 7136856-1 (Version None)
Quarter: 2010Q4

REPORT INFORMATION
  Report Type: 
  Country: None (occurrence: None)
  Receive Date: 20101119
  Receipt Date: 20101110
  Transmission Date: 20110411
  Serious: Yes (Hospitalization)
  Sender: FDA-Public Use
  Company Number: WAES 1011KOR00006

PATIENT
  Age: 67 Year
  Sex: Male

DRUGS (2)
  1. CAP VORINOSTAT [Suspect]
     Indication: NON-SMALL CELL LUNG CANCER
     Dosage: 300 MG/DAILY PO
     Route: 048
     Dates: start: 20101015
  2. CODEINE [Concomitant]

REACTIONS (1)
  - HERPES ZOSTER [None]
